FAERS Safety Report 16482799 (Version 1)
Quarter: 2019Q2

REPORT INFORMATION
  Report Type: Spontaneous
  Country: US (occurrence: US)
  Receive Date: 20190627
  Receipt Date: 20190627
  Transmission Date: 20190711
  Serious: Yes (Hospitalization, Other)
  Sender: FDA-Public Use
  Company Number: US-SA-2019SA172159

PATIENT
  Age: 24 Year
  Sex: Female

DRUGS (1)
  1. DIPHENHYDRAMINE. [Suspect]
     Active Substance: DIPHENHYDRAMINE
     Indication: SUICIDE ATTEMPT
     Dosage: 18 G (360 PILLS OF 50 MG) 1X
     Route: 048

REACTIONS (11)
  - Coma [Recovering/Resolving]
  - Intentional overdose [Recovering/Resolving]
  - Postictal state [Recovering/Resolving]
  - Generalised tonic-clonic seizure [Recovered/Resolved]
  - Pupil fixed [Unknown]
  - Sinus tachycardia [Recovered/Resolved]
  - Confusional state [Recovering/Resolving]
  - Memory impairment [Recovering/Resolving]
  - Encephalopathy [Recovering/Resolving]
  - Hypotension [Recovered/Resolved]
  - Metabolic acidosis [Unknown]
